FAERS Safety Report 6701814-5 (Version None)
Quarter: 2010Q2

REPORT INFORMATION
  Report Type: 
  Country: None (occurrence: None)
  Receive Date: 20100427
  Receipt Date: 20100412
  Transmission Date: 20101027
  Serious: Yes (Hospitalization)
  Sender: FDA-Public Use
  Company Number: JPI-P-010124

PATIENT
  Age: 39 Year
  Sex: Female
  Weight: 86.1834 kg

DRUGS (8)
  1. XYREM [Suspect]
     Indication: CATAPLEXY
     Dosage: 4.5 GM (2.25 GM, 2 IN 1 D), ORAL
     Route: 048
     Dates: start: 20100224, end: 20100309
  2. IRON SUCROSE [Concomitant]
  3. INSULIN GLULISINE [Concomitant]
  4. INSULIN DETEMIR [Concomitant]
  5. DILTIAZEM [Concomitant]
  6. POTASSIUM [Concomitant]
  7. HYDROCHLOROTHIAZIDE [Concomitant]
  8. ARMODAFINIL [Concomitant]

REACTIONS (8)
  - BLOOD POTASSIUM DECREASED [None]
  - CATAPLEXY [None]
  - INCORRECT DOSE ADMINISTERED [None]
  - LOSS OF CONSCIOUSNESS [None]
  - NAUSEA [None]
  - RETCHING [None]
  - SLEEP PARALYSIS [None]
  - VOMITING [None]
